FAERS Safety Report 15209933 (Version 1)
Quarter: 2018Q3

REPORT INFORMATION
  Report Type: Spontaneous
  Country: CN (occurrence: CN)
  Receive Date: 20180727
  Receipt Date: 20180727
  Transmission Date: 20181010
  Serious: Yes (Other)
  Sender: FDA-Public Use
  Company Number: CN-MYLANLABS-2018M1056125

PATIENT
  Age: 64 Year
  Sex: Male

DRUGS (2)
  1. CAPECITABINE. [Suspect]
     Active Substance: CAPECITABINE
     Indication: COLORECTAL ADENOCARCINOMA
     Dosage: RECEIVED SIX CYCLES WITH OXALIPLATIN
     Route: 065
  2. OXALIPLATIN. [Suspect]
     Active Substance: OXALIPLATIN
     Indication: COLORECTAL ADENOCARCINOMA
     Dosage: RECEIVED SIX CYCLES WITH CAPECITABINE
     Route: 065

REACTIONS (5)
  - Xerophthalmia [Unknown]
  - Aplasia pure red cell [Unknown]
  - Dry mouth [Unknown]
  - Large granular lymphocytosis [Unknown]
  - Anaemia [Unknown]
